FAERS Safety Report 22713024 (Version 4)
Quarter: 2023Q4

REPORT INFORMATION
  Report Type: Spontaneous
  Country: MX (occurrence: None)
  Receive Date: 20230717
  Receipt Date: 20231002
  Transmission Date: 20240109
  Serious: Yes (Life-Threatening, Disabling, Other)
  Sender: FDA-Public Use
  Company Number: 2023A143267

PATIENT
  Age: 43 Year
  Sex: Female

DRUGS (8)
  1. FASENRA [Suspect]
     Active Substance: BENRALIZUMAB
     Indication: Asthma
     Route: 058
     Dates: start: 20230518
  2. FASENRA [Suspect]
     Active Substance: BENRALIZUMAB
     Indication: Asthma
     Route: 058
     Dates: start: 20230619
  3. SERETIDE [Concomitant]
     Active Substance: FLUTICASONE PROPIONATE\SALMETEROL XINAFOATE
     Indication: Asthma
  4. IPRATROPIUM BROMIDE [Concomitant]
     Active Substance: IPRATROPIUM BROMIDE\IPRATROPIUM BROMIDE ANHYDROUS
     Indication: Asthma
  5. MONTELUKAST [Concomitant]
     Active Substance: MONTELUKAST SODIUM
     Indication: Asthma
  6. FLUTICASONE [Concomitant]
     Active Substance: FLUTICASONE
     Indication: Asthma
  7. ALBUTEROL [Concomitant]
     Active Substance: ALBUTEROL
  8. BECLOMETHASONE DIPROPIONATE\FORMOTEROL FUMARATE\GLYCOPYRROLATE [Concomitant]
     Active Substance: BECLOMETHASONE DIPROPIONATE\FORMOTEROL FUMARATE\GLYCOPYRROLATE

REACTIONS (33)
  - Asthmatic crisis [Recovering/Resolving]
  - Asthenia [Recovered/Resolved]
  - Gait disturbance [Recovered/Resolved]
  - Tinnitus [Recovering/Resolving]
  - General physical health deterioration [Recovered/Resolved]
  - Hypertension [Recovered/Resolved]
  - Influenza [Recovered/Resolved]
  - Nasopharyngitis [Recovered/Resolved]
  - Ear pain [Recovered/Resolved]
  - Ear discomfort [Recovering/Resolving]
  - Insomnia [Recovered/Resolved]
  - Myalgia [Recovered/Resolved]
  - Renal pain [Recovered/Resolved]
  - Urinary tract infection [Recovered/Resolved]
  - Pyrexia [Recovered/Resolved]
  - Fatigue [Recovering/Resolving]
  - Product dose omission issue [Unknown]
  - Cardiac discomfort [Unknown]
  - Feeling abnormal [Unknown]
  - Nervousness [Unknown]
  - Oxygen saturation [Unknown]
  - Dyspnoea [Recovering/Resolving]
  - Tremor [Unknown]
  - Wound [Recovered/Resolved]
  - Drug ineffective [Recovered/Resolved]
  - Inflammation [Recovered/Resolved]
  - Toothache [Recovered/Resolved]
  - Agitation [Recovering/Resolving]
  - Chest discomfort [Recovering/Resolving]
  - Cough [Recovered/Resolved]
  - Discomfort [Recovered/Resolved]
  - Dengue fever [Recovering/Resolving]
  - Wheezing [Recovering/Resolving]

NARRATIVE: CASE EVENT DATE: 20230519
